FAERS Safety Report 8215332-9 (Version None)
Quarter: 2012Q1

REPORT INFORMATION
  Report Type: 
  Country: None (occurrence: None)
  Receive Date: 20120314
  Receipt Date: 20120307
  Transmission Date: 20120608
  Serious: Yes (Hospitalization, Other)
  Sender: FDA-Public Use
  Company Number: ADR-2011-11403

PATIENT
  Age: 36 Year
  Sex: Female

DRUGS (3)
  1. BACLOFEN [Suspect]
     Indication: LUMBAR RADICULOPATHY
     Dosage: 50 MCG, DAILY, INTRATHECAL
     Route: 037
  2. BACLOFEN [Suspect]
     Indication: PAIN
     Dosage: 50 MCG, DAILY, INTRATHECAL
     Route: 037
  3. MORPHINE [Concomitant]

REACTIONS (5)
  - OVERDOSE [None]
  - MUSCLE SPASTICITY [None]
  - DRUG WITHDRAWAL SYNDROME [None]
  - SCAR [None]
  - SOMNOLENCE [None]
